FAERS Safety Report 21058364 (Version 1)
Quarter: 2022Q3

REPORT INFORMATION
  Report Type: Report from Study
  Country: US (occurrence: US)
  Receive Date: 20220708
  Receipt Date: 20220708
  Transmission Date: 20221026
  Serious: No
  Sender: FDA-Public Use
  Company Number: US-NOVARTISTESTPH-NVSC2022US155089

PATIENT
  Age: 53 Year
  Sex: Female

DRUGS (1)
  1. COSENTYX [Suspect]
     Active Substance: SECUKINUMAB
     Indication: Arthralgia
     Dosage: 150 MG, QMO
     Route: 058
     Dates: start: 202204

REACTIONS (3)
  - Arthralgia [Unknown]
  - Diarrhoea [Unknown]
  - Product use in unapproved indication [Unknown]

NARRATIVE: CASE EVENT DATE: 20220401
